FAERS Safety Report 19504588 (Version 3)
Quarter: 2021Q3

REPORT INFORMATION
  Report Type: Other
  Country: CA (occurrence: CA)
  Receive Date: 20210708
  Receipt Date: 20210915
  Transmission Date: 20211014
  Serious: Yes (Other)
  Sender: FDA-Public Use
  Company Number: CA-ROCHE-2489028

PATIENT
  Age: 10 Year
  Sex: Male
  Weight: 34 kg

DRUGS (14)
  1. ACTEMRA [Suspect]
     Active Substance: TOCILIZUMAB
     Indication: KIDNEY TRANSPLANT REJECTION
     Dosage: 04/FEB/2021?ONGOING
     Route: 042
  2. METHYLPREDNISOLONE. [Concomitant]
     Active Substance: METHYLPREDNISOLONE
     Indication: TRANSPLANT REJECTION
     Dosage: 10 MG/KG ? 3 DOSES
  3. MELATONIN [Concomitant]
     Active Substance: MELATONIN
  4. THYMOGLOBULIN [Concomitant]
     Active Substance: LAPINE T-LYMPHOCYTE IMMUNE GLOBULIN
     Indication: TRANSPLANT REJECTION
     Dosage: 10 DOSES
  5. ADVAGRAF [Concomitant]
     Active Substance: TACROLIMUS
     Dosage: ONGOING
  6. PREDNISONE. [Concomitant]
     Active Substance: PREDNISONE
  7. SODIUM CHLORIDE. [Concomitant]
     Active Substance: SODIUM CHLORIDE
  8. RITUXAN [Suspect]
     Active Substance: RITUXIMAB
     Indication: TRANSPLANT REJECTION
     Route: 065
  9. CELLCEPT [Suspect]
     Active Substance: MYCOPHENOLATE MOFETIL\MYCOPHENOLATE MOFETIL HYDROCHLORIDE
     Indication: PRODUCT USED FOR UNKNOWN INDICATION
     Dosage: DRUG DOSE FIRST ADMINISTERED IS UNKNOWN
     Route: 065
  10. SEPTRA [Concomitant]
     Active Substance: SULFAMETHOXAZOLE\TRIMETHOPRIM
  11. IRON FERROUS SULFATE [Concomitant]
     Active Substance: FERROUS SULFATE
  12. TACROLIMUS. [Concomitant]
     Active Substance: TACROLIMUS
  13. ACTEMRA [Suspect]
     Active Substance: TOCILIZUMAB
     Indication: TRANSPLANT REJECTION
     Dosage: START DATE: 27/SEP/2019
     Route: 042
     Dates: end: 20200924
  14. IRON [Concomitant]
     Active Substance: IRON

REACTIONS (21)
  - Nausea [Recovered/Resolved]
  - Off label use [Unknown]
  - Respiratory rate increased [Unknown]
  - Skin papilloma [Unknown]
  - Neutropenia [Unknown]
  - Glomerulonephritis [Unknown]
  - Tubulointerstitial nephritis [Unknown]
  - Nasal congestion [Recovered/Resolved]
  - Blood creatinine increased [Recovered/Resolved]
  - Cough [Recovered/Resolved]
  - Headache [Recovered/Resolved]
  - Mouth ulceration [Unknown]
  - Neoplasm [Unknown]
  - White blood cell count decreased [Recovered/Resolved]
  - Blood pressure diastolic decreased [Unknown]
  - Injury [Unknown]
  - Heart rate increased [Unknown]
  - Capillaritis [Unknown]
  - Blood pressure diastolic abnormal [Unknown]
  - Blood pressure systolic decreased [Unknown]
  - Vessel puncture site pain [Recovered/Resolved]

NARRATIVE: CASE EVENT DATE: 20190712
